FAERS Safety Report 12098119 (Version 2)
Quarter: 2016Q1

REPORT INFORMATION
  Report Type: Report from Study
  Country: US (occurrence: US)
  Receive Date: 20160221
  Receipt Date: 20160303
  Transmission Date: 20160526
  Serious: Yes (Hospitalization)
  Sender: FDA-Public Use
  Company Number: US-AMGEN-USACT2016019357

PATIENT
  Age: 82 Year
  Sex: Female

DRUGS (6)
  1. AMG 145 [Suspect]
     Active Substance: EVOLOCUMAB
     Indication: HYPERLIPIDAEMIA
     Dosage: UNK UNK, Q4WK
     Route: 058
  2. AMG 145 [Suspect]
     Active Substance: EVOLOCUMAB
     Indication: DYSLIPIDAEMIA
  3. 3.5 ML PERSONAL INJECTOR [Suspect]
     Active Substance: DEVICE
     Indication: DYSLIPIDAEMIA
  4. PREFILLED AUTOINJECTOR/PEN [Suspect]
     Active Substance: DEVICE
     Indication: DYSLIPIDAEMIA
  5. PREFILLED AUTOINJECTOR/PEN [Suspect]
     Active Substance: DEVICE
     Indication: HYPERLIPIDAEMIA
     Dosage: UNK UNK, Q4WK
     Route: 058
  6. 3.5 ML PERSONAL INJECTOR [Suspect]
     Active Substance: DEVICE
     Indication: HYPERLIPIDAEMIA
     Dosage: UNK
     Route: 058

REACTIONS (1)
  - Hip fracture [Unknown]

NARRATIVE: CASE EVENT DATE: 20160214
